FAERS Safety Report 4923579-X (Version None)
Quarter: 2006Q1

REPORT INFORMATION
  Report Type: 
  Country: None (occurrence: None)
  Receive Date: 20060221
  Receipt Date: 20060208
  Transmission Date: 20060701
  Serious: Yes (Other)
  Sender: FDA-Public Use
  Company Number: 2006020099

PATIENT
  Age: 88 Year
  Sex: Female
  Weight: 74.3899 kg

DRUGS (8)
  1. LIPITOR [Suspect]
     Indication: BLOOD CHOLESTEROL INCREASED
     Dosage: 40 MG (40 MG, 1 IN 1 D), ORAL
     Route: 048
     Dates: start: 20051103, end: 20051112
  2. PLAVIX [Concomitant]
  3. TOPROL-XL [Concomitant]
  4. DIGOXIN [Concomitant]
  5. LASIX [Concomitant]
  6. POTASSIUM (POTASSIUM) [Concomitant]
  7. XANAX [Concomitant]
  8. LOPRESSOR [Concomitant]

REACTIONS (7)
  - ARTHRALGIA [None]
  - CATARACT OPERATION [None]
  - CONDITION AGGRAVATED [None]
  - DYSPNOEA [None]
  - MOBILITY DECREASED [None]
  - PAIN [None]
  - SENSATION OF HEAVINESS [None]
